FAERS Safety Report 15225236 (Version 1)
Quarter: 2018Q3

REPORT INFORMATION
  Report Type: Report from Study
  Country: US (occurrence: US)
  Receive Date: 20180801
  Receipt Date: 20180801
  Transmission Date: 20181010
  Serious: Yes (Other)
  Sender: FDA-Public Use
  Company Number: US-TEVA-2018-US-932928

PATIENT
  Age: 28 Year
  Sex: Female

DRUGS (1)
  1. AUSTEDO [Suspect]
     Active Substance: DEUTETRABENAZINE
     Indication: TARDIVE DYSKINESIA
     Dosage: 12 MILLIGRAM DAILY; TITRATION
     Route: 065
     Dates: start: 20180715

REACTIONS (5)
  - Blindness [Unknown]
  - Restlessness [Unknown]
  - Tremor [Unknown]
  - Vision blurred [Unknown]
  - Depression [Unknown]

NARRATIVE: CASE EVENT DATE: 20180721
